FAERS Safety Report 9464435 (Version 3)
Quarter: 2013Q3

REPORT INFORMATION
  Report Type: Spontaneous
  Country: US (occurrence: US)
  Receive Date: 20130819
  Receipt Date: 20130919
  Transmission Date: 20140515
  Serious: No
  Sender: FDA-Public Use
  Company Number: US-PFIZER INC-2013239062

PATIENT
  Age: 70 Year
  Sex: Female
  Weight: 81.63 kg

DRUGS (1)
  1. ATORVASTATIN CALCIUM [Suspect]
     Indication: BLOOD CHOLESTEROL INCREASED
     Dosage: UNK

REACTIONS (6)
  - Blood cholesterol increased [Unknown]
  - Bone pain [Unknown]
  - Muscle spasms [Unknown]
  - Drug ineffective [Unknown]
  - Pain in extremity [Unknown]
  - Pain in extremity [Recovering/Resolving]
